FAERS Safety Report 10432607 (Version 1)
Quarter: 2014Q3

REPORT INFORMATION
  Report Type: Spontaneous
  Country: US (occurrence: None)
  Receive Date: 20140904
  Receipt Date: 20140904
  Transmission Date: 20150326
  Serious: No
  Sender: FDA-Public Use
  Company Number: None

PATIENT
  Age: 55 Year
  Sex: Female
  Weight: 96.16 kg

DRUGS (2)
  1. CYMBALTA [Suspect]
     Active Substance: DULOXETINE HYDROCHLORIDE
     Indication: MAJOR DEPRESSION
     Dosage: TOOK FOR ONLY A DAY OR SO BEFORE REACTION.?30MG , ONE QD X7 DAT THEN
     Route: 048
  2. CYMBALTA [Suspect]
     Active Substance: DULOXETINE HYDROCHLORIDE
     Route: 048

REACTIONS (4)
  - Product substitution issue [None]
  - Pruritus [None]
  - Pharyngeal oedema [None]
  - Dyspnoea [None]

NARRATIVE: CASE EVENT DATE: 20131125
